FAERS Safety Report 8521360-6 (Version None)
Quarter: 2012Q3

REPORT INFORMATION
  Report Type: 
  Country: None (occurrence: None)
  Receive Date: 20120712
  Receipt Date: 20120712
  Transmission Date: 20120928
  Serious: Yes (Other)
  Sender: FDA-Public Use
  Company Number: None

PATIENT
  Age: 63 Year
  Sex: Female

DRUGS (1)
  1. PROLIA [Suspect]
     Indication: OSTEOPOROSIS
     Dosage: 60 MG Q 6 MO SC
     Route: 058
     Dates: start: 20120123

REACTIONS (3)
  - DRY SKIN [None]
  - RASH [None]
  - GINGIVAL RECESSION [None]
